FAERS Safety Report 13819311 (Version 2)
Quarter: 2018Q1

REPORT INFORMATION
  Report Type: Report from Study
  Country: US (occurrence: US)
  Receive Date: 20170731
  Receipt Date: 20180201
  Transmission Date: 20180508
  Serious: No
  Sender: FDA-Public Use
  Company Number: US-EXELIXIS-CABO-17008507

PATIENT
  Age: 73 Year
  Sex: Male

DRUGS (6)
  1. CABOMETYX [Suspect]
     Active Substance: CABOZANTINIB S-MALATE
     Dosage: 60 MG, QD, 2 WK ON, 1 WK OFF
     Route: 048
     Dates: start: 201703
  2. NEXIUM [Concomitant]
     Active Substance: ESOMEPRAZOLE MAGNESIUM
  3. CABOMETYX [Suspect]
     Active Substance: CABOZANTINIB S-MALATE
     Dosage: 60 MG, QD, 2 WK ON, 1 WK OFF
     Route: 048
     Dates: start: 201611, end: 201612
  4. CABOMETYX [Suspect]
     Active Substance: CABOZANTINIB S-MALATE
     Dosage: 60 MG, QD, 2 WK ON, 1 WK OFF
     Route: 048
     Dates: start: 20170204, end: 2017
  5. CABOMETYX [Suspect]
     Active Substance: CABOZANTINIB S-MALATE
     Dosage: 40 MG, QD, 2 WK ON, 1 WK OFF
     Route: 048
     Dates: start: 20170522
  6. CABOMETYX [Suspect]
     Active Substance: CABOZANTINIB S-MALATE
     Indication: RENAL CANCER
     Dosage: 60 MG, QD
     Route: 048
     Dates: start: 20160728, end: 201611

REACTIONS (9)
  - Fatigue [Not Recovered/Not Resolved]
  - Diarrhoea [Unknown]
  - Blood pressure abnormal [Unknown]
  - Decreased appetite [Not Recovered/Not Resolved]
  - Gout [Unknown]
  - Weight decreased [Unknown]
  - Neoplasm recurrence [Unknown]
  - Dysphonia [Not Recovered/Not Resolved]
  - Hypophagia [Unknown]

NARRATIVE: CASE EVENT DATE: 20170215
